FAERS Safety Report 24878317 (Version 1)
Quarter: 2025Q1

REPORT INFORMATION
  Report Type: Spontaneous
  Country: US (occurrence: US)
  Receive Date: 20250123
  Receipt Date: 20250123
  Transmission Date: 20250408
  Serious: Yes (Death, Hospitalization, Other)
  Sender: ORGANON
  Company Number: US-ORGANON-O2501USA002182

PATIENT
  Age: 35 Year
  Sex: Female

DRUGS (10)
  1. COZAAR [Suspect]
     Active Substance: LOSARTAN POTASSIUM
     Route: 048
  2. METOPROLOL [Suspect]
     Active Substance: METOPROLOL
     Route: 048
  3. GLYBURIDE [Suspect]
     Active Substance: GLYBURIDE
     Route: 048
  4. AMLODIPINE [Suspect]
     Active Substance: AMLODIPINE BESYLATE
     Route: 048
  5. METFORMIN [Suspect]
     Active Substance: METFORMIN HYDROCHLORIDE
     Route: 048
  6. LABETALOL [Suspect]
     Active Substance: LABETALOL
     Route: 048
  7. NIFEDIPINE [Suspect]
     Active Substance: NIFEDIPINE
     Route: 048
  8. TOPIRAMATE [Suspect]
     Active Substance: TOPIRAMATE
     Route: 048
  9. HYDROXYZINE [Suspect]
     Active Substance: HYDROXYZINE HYDROCHLORIDE
     Route: 048
  10. BUSPIRONE [Suspect]
     Active Substance: BUSPIRONE HYDROCHLORIDE
     Route: 048

REACTIONS (1)
  - Suspected suicide [Fatal]
